FAERS Safety Report 7742910-3 (Version None)
Quarter: 2011Q3

REPORT INFORMATION
  Report Type: 
  Country: None (occurrence: None)
  Receive Date: 20110912
  Receipt Date: 20110829
  Transmission Date: 20111222
  Serious: Yes (Death, Hospitalization, Other)
  Sender: FDA-Public Use
  Company Number: US-ELI_LILLY_AND_COMPANY-US201102006301

PATIENT
  Sex: Female
  Weight: 43.537 kg

DRUGS (15)
  1. FORTEO [Suspect]
     Dosage: 20 UG, QD
     Route: 065
     Dates: end: 20110602
  2. AMLODIPINE [Concomitant]
     Dosage: 5 MG, QD
  3. ASPIRIN [Concomitant]
     Dosage: 81 MG, QD
  4. FORTEO [Suspect]
     Indication: OSTEOPOROSIS
     Dosage: 20 UG, DAILY (1/D)
     Route: 065
     Dates: start: 20101110
  5. NORVASC [Concomitant]
     Dosage: 5 MG, UNK
  6. MICARDIS [Concomitant]
     Dosage: 40 MG, QD
     Dates: end: 20110603
  7. HYDROCHLOROTHIAZIDE [Concomitant]
     Dosage: 25 MG, QD
  8. LEVOXYL [Concomitant]
     Dosage: 100 MG, UNK
  9. CITALOPRAM HYDROBROMIDE [Concomitant]
     Dosage: 20 MG, QD
  10. ASPIRIN [Concomitant]
     Dosage: 81 MG, QD
  11. CITALOPRAM HYDROBROMIDE [Concomitant]
     Dosage: 20 MG, UNK
     Dates: end: 20110603
  12. CALTRATE + D [Concomitant]
     Dosage: UNK, BID
  13. CENTRUM SILVER [Concomitant]
     Dosage: UNK, QD
  14. LEVOTHYROXINE SODIUM [Concomitant]
     Dosage: 100 UG, QD
  15. CALTRATE                           /00944201/ [Concomitant]
     Dosage: 600 MG, QD

REACTIONS (4)
  - FATIGUE [None]
  - HICCUPS [None]
  - INJECTION SITE PAIN [None]
  - OESOPHAGEAL CANCER METASTATIC [None]
